FAERS Safety Report 4596332-7 (Version None)
Quarter: 2005Q1

REPORT INFORMATION
  Report Type: 
  Country: None (occurrence: None)
  Receive Date: 20050228
  Receipt Date: 20050218
  Transmission Date: 20050727
  Serious: Yes (Death, Life-Threatening)
  Sender: FDA-Public Use
  Company Number: 200510150BVD

PATIENT
  Age: 77 Year
  Sex: Female
  Weight: 110 kg

DRUGS (2)
  1. CIPROFLOXACIN [Suspect]
     Indication: PNEUMONIA
     Dosage: 200 MG, BID, INTRAVENOUS
     Route: 042
     Dates: start: 20041129, end: 20041202
  2. AMPICILLIN SODIUM/SULBACTAM SODIUM [Concomitant]

REACTIONS (2)
  - HYPOXIC ENCEPHALOPATHY [None]
  - TORSADE DE POINTES [None]
